FAERS Safety Report 7724091-5 (Version None)
Quarter: 2011Q3

REPORT INFORMATION
  Report Type: 
  Country: None (occurrence: None)
  Receive Date: 20110901
  Receipt Date: 20110824
  Transmission Date: 20111222
  Serious: Yes (Other)
  Sender: FDA-Public Use
  Company Number: JP-TEVA-298575ISR

PATIENT
  Age: 6 Year
  Sex: Male

DRUGS (4)
  1. CISPLATIN [Suspect]
     Indication: BRAIN NEOPLASM
  2. BLEOMYCIN SULFATE [Suspect]
     Indication: BRAIN NEOPLASM
  3. VINBLASTINE SULFATE [Suspect]
     Indication: BRAIN NEOPLASM
  4. CYCLOPHOSPHAMIDE [Suspect]
     Indication: BRAIN NEOPLASM

REACTIONS (3)
  - RENAL INJURY [None]
  - VOMITING [None]
  - NEUTROPENIA [None]
